FAERS Safety Report 9940259 (Version 1)
Quarter: 2014Q1

REPORT INFORMATION
  Report Type: Report from Study
  Country: US (occurrence: US)
  Receive Date: 20140303
  Receipt Date: 20140303
  Transmission Date: 20141002
  Serious: No
  Sender: FDA-Public Use
  Company Number: US-ABBVIE-13P-163-1033892-00

PATIENT
  Age: 45 Year
  Sex: Female

DRUGS (13)
  1. HUMIRA [Suspect]
     Indication: PSORIASIS
     Dosage: STARTER DOSE
     Dates: start: 20130104
  2. CLARITIN [Concomitant]
     Indication: HYPERSENSITIVITY
     Dosage: ONE DAILY
  3. FUROSEMIDE [Concomitant]
     Indication: SWELLING
     Dosage: 20MG DAILY
  4. GABAPENTIN [Concomitant]
     Indication: PRODUCT USED FOR UNKNOWN INDICATION
     Dosage: ONE DAILY
  5. MELATONIN [Concomitant]
     Indication: INSOMNIA
     Dosage: 5MG ONCE DAILY
  6. SKELAXIN [Concomitant]
     Indication: MYALGIA
     Dosage: ONCE NIGHTLY
  7. ALPRAZOLAM [Concomitant]
     Indication: ANXIETY
     Dosage: .25MG ONCE DAILY
  8. AMITIZA [Concomitant]
     Indication: CONSTIPATION PROPHYLAXIS
     Dosage: 24MG DAILY
  9. NAPROXEN [Concomitant]
     Indication: PAIN
  10. FLUTICASONE [Concomitant]
     Indication: PRODUCT USED FOR UNKNOWN INDICATION
     Dosage: INHALER AT NIGHT
  11. CRESTOR [Concomitant]
     Indication: BLOOD CHOLESTEROL INCREASED
     Dosage: DAILY
  12. LISINOPRIL [Concomitant]
     Indication: BLOOD PRESSURE
     Dosage: 10-12.5MG ONCE DAILY
  13. COHOSH [Concomitant]
     Indication: HOT FLUSH

REACTIONS (1)
  - Pain [Recovered/Resolved]
